FAERS Safety Report 8070099-2 (Version None)
Quarter: 2012Q1

REPORT INFORMATION
  Report Type: 
  Country: None (occurrence: None)
  Receive Date: 20120125
  Receipt Date: 20111114
  Transmission Date: 20120608
  Serious: Yes (Hospitalization, Other)
  Sender: FDA-Public Use
  Company Number: US-ROCHE-1013650

PATIENT

DRUGS (3)
  1. CYCLOPHOSPHAMIDE [Suspect]
     Indication: LYMPHOMA
  2. MABTHERA [Suspect]
     Indication: LYMPHOMA
  3. PEGFILGRASTIM [Concomitant]
     Indication: LYMPHOMA

REACTIONS (6)
  - BACTERAEMIA [None]
  - FEBRILE NEUTROPENIA [None]
  - ATRIAL FIBRILLATION [None]
  - DEHYDRATION [None]
  - PARAINFLUENZAE VIRUS INFECTION [None]
  - ARTHRITIS [None]
